FAERS Safety Report 23772003 (Version 1)
Quarter: 2024Q2

REPORT INFORMATION
  Report Type: Spontaneous
  Country: FR (occurrence: FR)
  Receive Date: 20240423
  Receipt Date: 20240423
  Transmission Date: 20240715
  Serious: Yes (Hospitalization)
  Sender: FDA-Public Use
  Company Number: None

PATIENT
  Age: 29 Year
  Sex: Female
  Weight: 63 kg

DRUGS (2)
  1. TEGRETOL [Suspect]
     Active Substance: CARBAMAZEPINE
     Indication: Trigeminal neuralgia
     Dosage: 400 MG, QD, 2 COMPRIM?S PAR JOUR
     Route: 048
     Dates: start: 20240308, end: 20240318
  2. KETOPROFEN [Suspect]
     Active Substance: KETOPROFEN
     Indication: Trigeminal neuralgia
     Dosage: UNK
     Route: 048
     Dates: start: 20240308, end: 20240318

REACTIONS (1)
  - Drug reaction with eosinophilia and systemic symptoms [Not Recovered/Not Resolved]

NARRATIVE: CASE EVENT DATE: 20240317
